FAERS Safety Report 20080381 (Version 1)
Quarter: 2021Q4

REPORT INFORMATION
  Report Type: Spontaneous
  Country: DE (occurrence: DE)
  Receive Date: 20211117
  Receipt Date: 20211117
  Transmission Date: 20220303
  Serious: Yes (Hospitalization)
  Sender: FDA-Public Use
  Company Number: DE-MYLANLABS-2021M1083661

PATIENT
  Age: 71 Year
  Sex: Female

DRUGS (8)
  1. PREDNISOLONE [Suspect]
     Active Substance: PREDNISOLONE
     Indication: Product used for unknown indication
     Dosage: 10 MG, 1-1-0-0
  2. ANASTROZOLE [Concomitant]
     Active Substance: ANASTROZOLE
     Dosage: 1-0-0-0
  3. CHOLECALCIFEROL [Concomitant]
     Active Substance: CHOLECALCIFEROL
     Dosage: 20000 IE, SCHEMA
  4. PANTOPRAZOLE [Concomitant]
     Active Substance: PANTOPRAZOLE
     Dosage: 40 MG, 1-0-0-0
  5. FORMOTEROL [Concomitant]
     Active Substance: FORMOTEROL
     Dosage: 9.83 ?G, 1-0-1-0
  6. TORSEMIDE [Concomitant]
     Active Substance: TORSEMIDE
     Dosage: 10 MG, 0.5-0-0-0
  7. OPIPRAMOL [Concomitant]
     Active Substance: OPIPRAMOL
     Dosage: 50 MG, 1-1-0-0
  8. FENOTEROL [Concomitant]
     Active Substance: FENOTEROL
     Dosage: 100 ?G, 2-2-2-2

REACTIONS (11)
  - Electrocardiogram abnormal [Unknown]
  - Anaemia [Unknown]
  - Loss of consciousness [Unknown]
  - Dyspnoea [Unknown]
  - Cyanosis [Unknown]
  - Oedema peripheral [Unknown]
  - Tachycardia [Unknown]
  - Acute respiratory failure [Unknown]
  - Systemic infection [Unknown]
  - Condition aggravated [Unknown]
  - Tachypnoea [Unknown]
